FAERS Safety Report 10766036 (Version 4)
Quarter: 2015Q2

REPORT INFORMATION
  Report Type: Spontaneous
  Country: IT (occurrence: IT)
  Receive Date: 20150205
  Receipt Date: 20150512
  Transmission Date: 20150821
  Serious: Yes (Life-Threatening, Hospitalization)
  Sender: FDA-Public Use
  Company Number: IT-PFIZER INC-2015042499

PATIENT
  Age: 54 Year
  Sex: Female
  Weight: 57 kg

DRUGS (10)
  1. FLUOROURACILE TEVA [Suspect]
     Active Substance: FLUOROURACIL
     Indication: BREAST CANCER
     Dosage: 795 MG, CYCLIC
     Route: 040
     Dates: start: 20141017, end: 20141107
  2. RANITIDINE [Concomitant]
     Active Substance: RANITIDINE\RANITIDINE HYDROCHLORIDE
     Indication: ABDOMINAL PAIN UPPER
     Dosage: 50 MG, UNK
     Route: 042
     Dates: start: 20141107, end: 20141107
  3. LONQUEX [Concomitant]
     Active Substance: LIPEGFILGRASTIM
     Indication: NEUTROPENIA
     Dosage: 6 MG, UNK
     Route: 058
     Dates: start: 20141107, end: 20141107
  4. DEXAMETHASONE 21-PHOSPHATE DISODIUM [Concomitant]
     Indication: PROPHYLAXIS OF NAUSEA AND VOMITING
     Dosage: 12 MG, UNK
     Route: 042
     Dates: start: 20141107, end: 20141107
  5. ENDOXAN-BAXTER [Suspect]
     Active Substance: CYCLOPHOSPHAMIDE
     Indication: BREAST CANCER
     Dosage: 795 MG, CYCLIC
     Route: 042
     Dates: start: 20141017, end: 20141107
  6. FARMORUBICINA [Suspect]
     Active Substance: EPIRUBICIN HYDROCHLORIDE
     Indication: BREAST CANCER
     Dosage: 143.10 MG, CYCLIC
     Route: 042
     Dates: start: 20141017, end: 20141107
  7. EMEND [Concomitant]
     Active Substance: APREPITANT
     Indication: PROPHYLAXIS OF NAUSEA AND VOMITING
     Dosage: 125 MG, UNK
     Route: 048
     Dates: start: 20141107, end: 20141109
  8. EUTIROX [Concomitant]
     Active Substance: LEVOTHYROXINE SODIUM
     Indication: POST PROCEDURAL HYPOTHYROIDISM
     Dosage: 50 ?G, UNK
     Route: 048
  9. ALOXI [Concomitant]
     Active Substance: PALONOSETRON HYDROCHLORIDE
     Indication: PROPHYLAXIS OF NAUSEA AND VOMITING
     Dosage: 250 ?G, UNK
     Route: 040
     Dates: start: 20141107, end: 20141107
  10. OMEPRAZOLE. [Concomitant]
     Active Substance: OMEPRAZOLE
     Indication: ABDOMINAL PAIN UPPER
     Dosage: 20 MG, UNK
     Route: 048

REACTIONS (5)
  - Epistaxis [Recovered/Resolved]
  - Enteritis [Recovered/Resolved with Sequelae]
  - Colitis [Recovered/Resolved with Sequelae]
  - Septic shock [Recovered/Resolved with Sequelae]
  - Pancytopenia [Recovered/Resolved with Sequelae]

NARRATIVE: CASE EVENT DATE: 201411
